FAERS Safety Report 25638983 (Version 1)
Quarter: 2025Q3

REPORT INFORMATION
  Report Type: Spontaneous
  Country: EU (occurrence: EU)
  Receive Date: 20250804
  Receipt Date: 20250804
  Transmission Date: 20251020
  Serious: Yes (Life-Threatening, Hospitalization, Disabling, Other)
  Sender: BRISTOL-MYERS SQUIBB COMPANY
  Company Number: None

PATIENT
  Age: 51 Year
  Sex: Male
  Weight: 77 kg

DRUGS (3)
  1. YERVOY [Suspect]
     Active Substance: IPILIMUMAB
     Indication: Renal cancer
     Dosage: A TOTAL OF 4 CYCLES EVERY 3 WEEKS
     Route: 042
     Dates: start: 20230220, end: 20230424
  2. OPDIVO [Suspect]
     Active Substance: NIVOLUMAB
     Indication: Renal cancer
     Route: 042
     Dates: start: 20230420, end: 20250611
  3. OPDIVO [Suspect]
     Active Substance: NIVOLUMAB
     Dosage: FIRST 4 CYCLES IN COMBINATION WITH IPILIMUMAB (IPLI 1MG/KG AND NIVO 3 MG/KG) WERE ADMINISTERED EVERY
     Route: 042
     Dates: start: 20230220, end: 20230424

REACTIONS (2)
  - Enterocolitis haemorrhagic [Recovering/Resolving]
  - Blood thyroid stimulating hormone increased [Unknown]

NARRATIVE: CASE EVENT DATE: 20250601
